FAERS Safety Report 9877904 (Version 2)
Quarter: 2014Q1

REPORT INFORMATION
  Report Type: Spontaneous
  Country: BR (occurrence: BR)
  Receive Date: 20140206
  Receipt Date: 20140206
  Transmission Date: 20141002
  Serious: Yes (Other)
  Sender: FDA-Public Use
  Company Number: BR-UCBSA-101612

PATIENT
  Age: 50 Year
  Sex: Female

DRUGS (5)
  1. CIMZIA [Suspect]
  2. PARACETAMOL [Concomitant]
     Indication: PAIN
  3. PREGABALIN [Concomitant]
     Indication: PAIN
  4. TRAMADOL HYDROCHLORIDE [Concomitant]
     Indication: PAIN
  5. CORTICORTEN [Concomitant]
     Indication: RHEUMATOID ARTHRITIS

REACTIONS (8)
  - Depression [Unknown]
  - Nausea [Not Recovered/Not Resolved]
  - Vomiting [Unknown]
  - Decreased appetite [Unknown]
  - Pain in extremity [Unknown]
  - Apathy [Not Recovered/Not Resolved]
  - Urinary tract infection [Not Recovered/Not Resolved]
  - Rash maculo-papular [Not Recovered/Not Resolved]
